FAERS Safety Report 14425760 (Version 1)
Quarter: 2018Q1

REPORT INFORMATION
  Report Type: Spontaneous
  Country: US (occurrence: US)
  Receive Date: 20180122
  Receipt Date: 20180122
  Transmission Date: 20180509
  Serious: No
  Sender: FDA-Public Use
  Company Number: None

PATIENT
  Sex: Female
  Weight: 13.5 kg

DRUGS (3)
  1. TYLENOL [Concomitant]
     Active Substance: ACETAMINOPHEN
  2. OSELTAMIVIR PHOSPHATE. [Suspect]
     Active Substance: OSELTAMIVIR PHOSPHATE
     Indication: INFLUENZA
     Dosage: ?          QUANTITY:5 ML;?
     Route: 048
     Dates: start: 20180119, end: 20180121
  3. MOTRIN [Concomitant]
     Active Substance: IBUPROFEN

REACTIONS (5)
  - Diarrhoea [None]
  - Therapy cessation [None]
  - Crying [None]
  - Dehydration [None]
  - Abdominal pain upper [None]

NARRATIVE: CASE EVENT DATE: 20180120
